FAERS Safety Report 5173337-9 (Version None)
Quarter: 2006Q4

REPORT INFORMATION
  Report Type: 
  Country: None (occurrence: None)
  Receive Date: 20061214
  Receipt Date: 20060608
  Transmission Date: 20070319
  Serious: No
  Sender: FDA-Public Use
  Company Number: US-AMGEN-KDL182452

PATIENT
  Sex: Female
  Weight: 63.1 kg

DRUGS (2)
  1. ENBREL [Suspect]
     Indication: RHEUMATOID ARTHRITIS
     Route: 058
     Dates: start: 20060320
  2. PREDNISONE TAB [Concomitant]
     Dates: start: 19990101

REACTIONS (3)
  - ARTHRALGIA [None]
  - BRONCHITIS [None]
  - PAIN [None]
